FAERS Safety Report 9792635 (Version 1)
Quarter: 2014Q1

REPORT INFORMATION
  Report Type: Spontaneous
  Country: US (occurrence: US)
  Receive Date: 20140102
  Receipt Date: 20140102
  Transmission Date: 20141002
  Serious: No
  Sender: FDA-Public Use
  Company Number: US-SA-2013SA101866

PATIENT
  Age: 19 Year
  Sex: Female
  Weight: 65 kg

DRUGS (8)
  1. AUBAGIO [Suspect]
     Indication: MULTIPLE SCLEROSIS
     Route: 048
     Dates: start: 20130930
  2. ALPRAZOLAM [Concomitant]
     Route: 065
  3. SINGULAIR [Concomitant]
     Route: 065
  4. VITAMIN B12 [Concomitant]
     Route: 065
  5. FISH OIL [Concomitant]
  6. VITAMIN E [Concomitant]
     Dosage: DOSE:100 UNIT(S)
     Route: 065
  7. TYLENOL PM [Concomitant]
     Dosage: DOSE: 25-500 MG
  8. GABAPENTIN [Concomitant]

REACTIONS (4)
  - Abdominal pain [Recovered/Resolved]
  - Dizziness [Unknown]
  - Vomiting [Recovered/Resolved]
  - Nausea [Unknown]
